FAERS Safety Report 9417817 (Version 1)
Quarter: 2013Q3

REPORT INFORMATION
  Report Type: Spontaneous
  Country: IT (occurrence: IT)
  Receive Date: 20130724
  Receipt Date: 20130724
  Transmission Date: 20140515
  Serious: Yes (Hospitalization)
  Sender: FDA-Public Use
  Company Number: IT-TEVA-420249ISR

PATIENT
  Age: 25 Year
  Sex: Female

DRUGS (3)
  1. DIAZEPAM [Suspect]
     Indication: INTENTIONAL SELF-INJURY
     Route: 048
     Dates: start: 20130705, end: 20130705
  2. BETAMETASONE [Concomitant]
     Indication: INTENTIONAL SELF-INJURY
     Dates: start: 20130705, end: 20130705
  3. FUROSEMIDE [Concomitant]
     Indication: INTENTIONAL SELF-INJURY
     Dates: start: 20130705, end: 20130705

REACTIONS (2)
  - Sopor [Recovered/Resolved]
  - Intentional self-injury [Recovered/Resolved]
